FAERS Safety Report 14680271 (Version 3)
Quarter: 2018Q2

REPORT INFORMATION
  Report Type: Spontaneous
  Country: US (occurrence: US)
  Receive Date: 20180326
  Receipt Date: 20180413
  Transmission Date: 20180711
  Serious: Yes (Other)
  Sender: FDA-Public Use
  Company Number: US-PFIZER INC-2018118479

PATIENT
  Age: 2 Year
  Sex: Male

DRUGS (4)
  1. DOXORUBICIN HCL [Suspect]
     Active Substance: DOXORUBICIN HYDROCHLORIDE
     Indication: HEPATOBLASTOMA
     Dosage: UNK, CYCLIC
  2. VINCRISTINE SULFATE. [Suspect]
     Active Substance: VINCRISTINE SULFATE
     Indication: HEPATOBLASTOMA
     Dosage: UNK, CYCLIC
  3. FLUOROURACIL. [Suspect]
     Active Substance: FLUOROURACIL
     Indication: HEPATOBLASTOMA
     Dosage: UNK, CYCLIC
  4. CISPLATIN. [Suspect]
     Active Substance: CISPLATIN
     Indication: HEPATOBLASTOMA
     Dosage: UNK, CYCLIC

REACTIONS (2)
  - Neutropenic colitis [Recovered/Resolved]
  - Febrile neutropenia [Recovered/Resolved]
